FAERS Safety Report 5142244-X (Version None)
Quarter: 2006Q4

REPORT INFORMATION
  Report Type: 
  Country: None (occurrence: None)
  Receive Date: 20061027
  Receipt Date: 20061018
  Transmission Date: 20070319
  Serious: Yes (Other)
  Sender: FDA-Public Use
  Company Number: 2006127553

PATIENT
  Age: 73 Year
  Sex: Female

DRUGS (8)
  1. CHANTIX [Suspect]
     Indication: SMOKING CESSATION THERAPY
     Dosage: 0.5 MG (0.5 MG, 1 IN 1 D), ORAL
     Route: 048
     Dates: start: 20061011, end: 20061015
  2. SPIRONOLACTONE [Concomitant]
  3. DIGOXIN [Concomitant]
  4. ZOCOR [Concomitant]
  5. CIMETIDINE [Concomitant]
  6. LISINOPRIL [Concomitant]
  7. KLOR-CON [Concomitant]
  8. FUROSEMIDE [Concomitant]

REACTIONS (3)
  - HEART RATE INCREASED [None]
  - SWELLING [None]
  - URINARY RETENTION [None]
